FAERS Safety Report 9409597 (Version 2)
Quarter: 2013Q3

REPORT INFORMATION
  Report Type: Spontaneous
  Country: MX (occurrence: MX)
  Receive Date: 20130719
  Receipt Date: 20130819
  Transmission Date: 20140515
  Serious: Yes (Death)
  Sender: FDA-Public Use
  Company Number: PHHY2013MX073981

PATIENT
  Age: 64 Year
  Sex: Female

DRUGS (4)
  1. AFINITOR [Suspect]
     Dosage: 2.5 MG, DAILY
     Route: 048
     Dates: start: 201211, end: 201303
  2. SANDOSTATINA [Suspect]
  3. METFORMIN [Concomitant]
     Dosage: 850 MG, DAILY
  4. NORVASC [Concomitant]

REACTIONS (3)
  - Lung neoplasm malignant [Fatal]
  - Metastasis [Fatal]
  - Drug ineffective [Unknown]
